FAERS Safety Report 12301163 (Version 1)
Quarter: 2016Q2

REPORT INFORMATION
  Report Type: Spontaneous
  Country: US (occurrence: US)
  Receive Date: 20160425
  Receipt Date: 20160425
  Transmission Date: 20160815
  Serious: No
  Sender: FDA-Public Use
  Company Number: US-TAKEDA-2016TUS006498

PATIENT
  Sex: Male

DRUGS (27)
  1. ACTOS [Suspect]
     Active Substance: PIOGLITAZONE HYDROCHLORIDE
     Indication: PRODUCT USED FOR UNKNOWN INDICATION
     Dosage: UNK
     Route: 065
  2. CYMBALTA [Concomitant]
     Active Substance: DULOXETINE HYDROCHLORIDE
     Dosage: 30 MG, BID
     Route: 048
     Dates: start: 20150831
  3. CALCIUM CITRATE [Concomitant]
     Active Substance: CALCIUM CITRATE
     Dosage: UNK, QD
     Route: 048
     Dates: start: 20150305
  4. LYRICA [Concomitant]
     Active Substance: PREGABALIN
     Dosage: 150 MG, TID
     Route: 048
     Dates: start: 20151123
  5. INSPRA [Concomitant]
     Active Substance: EPLERENONE
     Dosage: 50 MG, QD
     Route: 048
     Dates: start: 20150511
  6. KLONOPIN [Concomitant]
     Active Substance: CLONAZEPAM
     Indication: PERIODIC LIMB MOVEMENT DISORDER
     Dosage: 1 MG, QD
     Route: 048
     Dates: start: 20160229
  7. PRILOSEC [Concomitant]
     Active Substance: OMEPRAZOLE MAGNESIUM
     Dosage: 20 MG, QD
     Route: 048
     Dates: start: 20150305
  8. FLOMAX [Concomitant]
     Active Substance: TAMSULOSIN HYDROCHLORIDE
     Dosage: 0.4 MG, QD
     Route: 048
     Dates: start: 20150305
  9. ACETAMINOPHEN\HYDROCODONE BITARTRATE [Concomitant]
     Active Substance: ACETAMINOPHEN\HYDROCODONE BITARTRATE
     Dosage: UNK
     Route: 048
     Dates: start: 20140201
  10. TIZANIDINE. [Concomitant]
     Active Substance: TIZANIDINE
     Dosage: 4 MG, TID
     Route: 048
     Dates: start: 20151022
  11. LISINOPRIL + HIDROCLOROTIAZIDA [Concomitant]
     Active Substance: HYDROCHLOROTHIAZIDE\LISINOPRIL
     Dosage: UNK, BID
     Route: 048
     Dates: start: 20150831
  12. HUMALOG [Concomitant]
     Active Substance: INSULIN LISPRO
     Dosage: UNK
     Route: 058
     Dates: start: 20150803
  13. ZOFRAN [Concomitant]
     Active Substance: ONDANSETRON HYDROCHLORIDE
     Dosage: 4 MG, TID
     Route: 048
     Dates: start: 20150803
  14. CELEBREX [Concomitant]
     Active Substance: CELECOXIB
     Dosage: 200 MG, BID
     Route: 048
  15. PRENATAL ONE [Concomitant]
     Dosage: UNK, QD
     Route: 048
     Dates: start: 20150305
  16. FLONASE                            /00908302/ [Concomitant]
     Active Substance: MOMETASONE FUROATE
     Dosage: UNK, QD
     Route: 045
     Dates: start: 20150305
  17. COLACE [Concomitant]
     Active Substance: DOCUSATE SODIUM
     Dosage: UNK
     Route: 048
     Dates: start: 2012
  18. CHLORTHALIDONE. [Concomitant]
     Active Substance: CHLORTHALIDONE
     Dosage: 25 MG, QD
     Route: 048
     Dates: start: 20150511
  19. MORPHINE [Concomitant]
     Active Substance: MORPHINE
     Dosage: 15 MG, BID
     Route: 048
     Dates: start: 20150803
  20. ATORVASTATIN [Concomitant]
     Active Substance: ATORVASTATIN
     Dosage: 40 MG, QD
     Route: 048
     Dates: start: 20150305
  21. VITAMIN D2 [Concomitant]
     Active Substance: ERGOCALCIFEROL
     Dosage: UNK, 3/WEEK
     Route: 048
     Dates: start: 20150224
  22. SYNTHROID [Concomitant]
     Active Substance: LEVOTHYROXINE SODIUM
     Dosage: 75 ?G, QD
     Route: 048
     Dates: start: 20150305
  23. JANUMET [Concomitant]
     Active Substance: METFORMIN HYDROCHLORIDE\SITAGLIPTIN PHOSPHATE
     Dosage: UNK, BID
     Route: 048
     Dates: start: 20150305
  24. ASPIRIN                            /00002701/ [Concomitant]
     Active Substance: ASPIRIN
     Dosage: UNK
     Dates: start: 2012
  25. TRULICITY [Concomitant]
     Active Substance: DULAGLUTIDE
     Dosage: UNK
     Route: 058
     Dates: start: 20160223
  26. TOPROL XL [Concomitant]
     Active Substance: METOPROLOL SUCCINATE
     Dosage: 100 MG, QD
     Route: 048
     Dates: start: 20150511
  27. AMLODIPINE [Concomitant]
     Active Substance: AMLODIPINE BESYLATE
     Dosage: 5 MG, QD
     Route: 048
     Dates: start: 20150511

REACTIONS (1)
  - Drug hypersensitivity [Unknown]
